FAERS Safety Report 19690951 (Version 2)
Quarter: 2021Q3

REPORT INFORMATION
  Report Type: Report from Study
  Country: CA (occurrence: CA)
  Receive Date: 20210812
  Receipt Date: 20210831
  Transmission Date: 20211014
  Serious: Yes (Disabling)
  Sender: FDA-Public Use
  Company Number: CA-BIOVITRUM-2021CA7303

PATIENT
  Age: 14 Year
  Sex: Female
  Weight: 40.9 kg

DRUGS (19)
  1. ERYTHROMYCIN. [Concomitant]
     Active Substance: ERYTHROMYCIN
     Dosage: EACH EYE 2 TIMES DAILY
     Route: 047
  2. PHENOBARBITAL SODIUM. [Concomitant]
     Active Substance: PHENOBARBITAL SODIUM
     Route: 042
  3. PANTOPRAZOLE [Concomitant]
     Active Substance: PANTOPRAZOLE
     Route: 042
  4. SODIUM BICARBONATE. [Concomitant]
     Active Substance: SODIUM BICARBONATE
     Dosage: SWISH + SPIT
  5. LUBRICATING [Concomitant]
     Dosage: ONCE DAILY IN EACH EYE
     Route: 047
  6. SODIUM CHLORIDE. [Concomitant]
     Active Substance: SODIUM CHLORIDE
     Dosage: EACH NARE 1 SPRAY TWICE DAILY
  7. CEFTAZIDIME?AVIBACTAM [Concomitant]
     Active Substance: AVIBACTAM SODIUM\CEFTAZIDIME
     Route: 042
  8. URSODIOL. [Concomitant]
     Active Substance: URSODIOL
     Dosage: VIA FEEDING TUBE
  9. LEVETIRACETAM IV [Concomitant]
     Active Substance: LEVETIRACETAM
     Route: 042
  10. AMIKACIN. [Concomitant]
     Active Substance: AMIKACIN
     Route: 042
  11. MYCOPHENOLATE MOFETIL IV 6 MG/ML [Concomitant]
     Route: 042
  12. DEXAMETHASONE. [Concomitant]
     Active Substance: DEXAMETHASONE
     Route: 042
  13. MEROPENEM. [Concomitant]
     Active Substance: MEROPENEM
     Route: 042
  14. AMPHOTERICIN B LIPOSOMAL [Concomitant]
     Active Substance: AMPHOTERICIN B
     Route: 042
  15. EMAPALUMAB. [Suspect]
     Active Substance: EMAPALUMAB
     Indication: FAMILIAL HAEMOPHAGOCYTIC LYMPHOHISTIOCYTOSIS
     Route: 041
     Dates: start: 20210706, end: 20210706
  16. FUROSEMIDE. [Concomitant]
     Active Substance: FUROSEMIDE
     Route: 042
  17. POLYETHYLENE GLYCOL 3350. [Concomitant]
     Active Substance: POLYETHYLENE GLYCOL 3350
     Route: 048
  18. EMAPALUMAB. [Suspect]
     Active Substance: EMAPALUMAB
     Route: 041
     Dates: start: 20210709, end: 20210709
  19. EMAPALUMAB. [Suspect]
     Active Substance: EMAPALUMAB
     Route: 041
     Dates: start: 20210713, end: 20210713

REACTIONS (2)
  - Enterobacter infection [Recovered/Resolved]
  - Sepsis [Recovered/Resolved]

NARRATIVE: CASE EVENT DATE: 20210728
